FAERS Safety Report 6638895-3 (Version None)
Quarter: 2010Q1

REPORT INFORMATION
  Report Type: 
  Country: None (occurrence: None)
  Receive Date: 20100316
  Receipt Date: 20100316
  Transmission Date: 20100710
  Serious: No
  Sender: FDA-Public Use
  Company Number: None

PATIENT
  Age: 48 Year
  Sex: Female
  Weight: 102.0593 kg

DRUGS (2)
  1. LEVAQUIN [Suspect]
     Indication: CELLULITIS
     Dosage: 750MG 1 DAILY PO
     Route: 048
     Dates: start: 20080208, end: 20080218
  2. LEVAQUIN [Suspect]
     Dosage: 500MG IV DRIP
     Route: 041
     Dates: start: 20080203, end: 20080208

REACTIONS (1)
  - TENDON RUPTURE [None]
